FAERS Safety Report 5218122-4 (Version None)
Quarter: 2007Q1

REPORT INFORMATION
  Report Type: 
  Country: None (occurrence: None)
  Receive Date: 20070124
  Receipt Date: 20070119
  Transmission Date: 20070707
  Serious: Yes (Hospitalization)
  Sender: FDA-Public Use
  Company Number: GB-MERCK-0612GBR00073

PATIENT
  Age: 54 Year
  Sex: Male

DRUGS (3)
  1. ZOCOR [Suspect]
     Route: 048
  2. RAMIPRIL [Suspect]
     Route: 065
  3. RANITIDINE [Suspect]
     Route: 065

REACTIONS (2)
  - HYPOTENSION [None]
  - OVERDOSE [None]
